FAERS Safety Report 10101937 (Version 1)
Quarter: 2014Q2

REPORT INFORMATION
  Report Type: Spontaneous
  Country: US (occurrence: None)
  Receive Date: 20140423
  Receipt Date: 20140423
  Transmission Date: 20141212
  Serious: No
  Sender: FDA-Public Use
  Company Number: None

PATIENT
  Age: 59 Year
  Sex: Female
  Weight: 90.72 kg

DRUGS (9)
  1. RANEXA [Suspect]
     Indication: CHEST DISCOMFORT
     Route: 048
     Dates: start: 20140225, end: 20140304
  2. CENTRUM SILVER [Concomitant]
  3. ATENOLOL [Concomitant]
  4. HYOSCYAMINE [Concomitant]
  5. LEVOTHYROXINE [Concomitant]
  6. FIBER [Concomitant]
  7. DICLOFENAC/SOD [Concomitant]
  8. VIT D2 [Concomitant]
  9. HYDROCHLOROTHIAZIDE [Concomitant]

REACTIONS (7)
  - Erythema [None]
  - Local swelling [None]
  - Abscess [None]
  - Pruritus [None]
  - Ocular hyperaemia [None]
  - Eye swelling [None]
  - Hypersensitivity [None]
